FAERS Safety Report 8851030 (Version 1)
Quarter: 2012Q4

REPORT INFORMATION
  Report Type: Report from Study
  Country: US (occurrence: US)
  Receive Date: 20121019
  Receipt Date: 20121019
  Transmission Date: 20130627
  Serious: Yes (Hospitalization, Other)
  Sender: FDA-Public Use
  Company Number: US-JNJFOC-20121006309

PATIENT
  Sex: Female

DRUGS (2)
  1. REMICADE [Suspect]
     Indication: CROHN^S DISEASE
     Dosage: 3 years later
     Route: 042
     Dates: start: 2009
  2. PAIN MEDICATION [Concomitant]
     Indication: PAIN

REACTIONS (10)
  - Dyspnoea [Unknown]
  - Palpitations [Unknown]
  - Arthritis enteropathic [Not Recovered/Not Resolved]
  - Antinuclear antibody positive [Unknown]
  - Lupus-like syndrome [Unknown]
  - Arthralgia [Not Recovered/Not Resolved]
  - Oropharyngeal pain [Unknown]
  - Headache [Unknown]
  - Lethargy [Unknown]
  - Energy increased [Unknown]
